FAERS Safety Report 4842953-3 (Version None)
Quarter: 2005Q4

REPORT INFORMATION
  Report Type: 
  Country: None (occurrence: None)
  Receive Date: 20051201
  Receipt Date: 20041018
  Transmission Date: 20060501
  Serious: Yes (Hospitalization)
  Sender: FDA-Public Use
  Company Number: DE-SANOFI-SYNTHELABO-D01200404234

PATIENT
  Sex: Male

DRUGS (7)
  1. CLOPIDOGREL BISULFATE [Suspect]
     Indication: ATRIAL FIBRILLATION
     Route: 048
     Dates: start: 20040506, end: 20041015
  2. IRBESARTAN/ PLACEBO [Suspect]
     Indication: ATRIAL FIBRILLATION
     Dosage: 150 MG/DAY FOR 2 WEEKS FOLLOWING BY 300 MG/DAY
     Route: 048
     Dates: start: 20040505
  3. IRBESARTAN/ PLACEBO [Suspect]
     Dosage: 300 MG
     Route: 048
     Dates: start: 20051101
  4. ASPIRIN [Concomitant]
     Indication: ATRIAL FIBRILLATION
     Dosage: 100 MG
     Route: 048
     Dates: start: 20040506
  5. METOPROLOL [Concomitant]
  6. ALLOPURINOL [Concomitant]
  7. BENALAPRIL [Concomitant]

REACTIONS (2)
  - HEPATIC ENZYME INCREASED [None]
  - JAUNDICE [None]
